FAERS Safety Report 6011720-X (Version None)
Quarter: 2008Q4

REPORT INFORMATION
  Report Type: 
  Country: None (occurrence: None)
  Receive Date: 20081218
  Receipt Date: 19910328
  Transmission Date: 20090506
  Serious: Yes (Death)
  Sender: FDA-Public Use
  Company Number: CA-ROCHE-910150939001

PATIENT
  Sex: Male
  Weight: 49.4 kg

DRUGS (5)
  1. INTERFERON ALFA-2A [Suspect]
     Route: 058
     Dates: start: 19910227, end: 19910306
  2. FLUOROURACIL [Suspect]
     Route: 042
     Dates: start: 19910227, end: 19910303
  3. SYNTHROID [Concomitant]
     Route: 048
     Dates: end: 19910325
  4. EMPRACET [Concomitant]
     Route: 048
     Dates: start: 19910315, end: 19910325
  5. MAGIC MOUTHWASH-/NYSTATIN/HYDROCORTISONE/BENADRYL [Concomitant]
     Dates: start: 19910315, end: 19910325

REACTIONS (1)
  - DISEASE PROGRESSION [None]
